FAERS Safety Report 6589370-6 (Version None)
Quarter: 2010Q1

REPORT INFORMATION
  Report Type: 
  Country: None (occurrence: None)
  Receive Date: 20100218
  Receipt Date: 20100218
  Transmission Date: 20100710
  Serious: Yes (Other)
  Sender: FDA-Public Use
  Company Number: IN-ROXANE LABORATORIES, INC.-2009-DE-07183GD

PATIENT
  Age: 45 Year
  Sex: Female

DRUGS (2)
  1. IPRATROPIUM BROMIDE [Suspect]
     Indication: BRONCHOSPASM
     Route: 055
  2. ALBUTEROL [Suspect]
     Indication: BRONCHOSPASM
     Route: 055

REACTIONS (3)
  - ACCIDENTAL EXPOSURE [None]
  - MYDRIASIS [None]
  - PUPILS UNEQUAL [None]
